FAERS Safety Report 24604018 (Version 1)
Quarter: 2024Q4

REPORT INFORMATION
  Report Type: Spontaneous
  Country: US (occurrence: US)
  Receive Date: 20241111
  Receipt Date: 20241111
  Transmission Date: 20250114
  Serious: No
  Sender: BIOVITRUM
  Company Number: US-BIOVITRUM-2024-US-014311

PATIENT
  Age: 9 Year
  Sex: Male

DRUGS (1)
  1. ANAKINRA [Suspect]
     Active Substance: ANAKINRA
     Indication: Autoinflammatory disease

REACTIONS (4)
  - Cough [Unknown]
  - Throat tightness [Unknown]
  - Vomiting [Unknown]
  - Off label use [Recovered/Resolved]
